FAERS Safety Report 7646393-3 (Version None)
Quarter: 2011Q3

REPORT INFORMATION
  Report Type: 
  Country: None (occurrence: None)
  Receive Date: 20110725
  Receipt Date: 20110707
  Transmission Date: 20111222
  Serious: Yes (Other)
  Sender: FDA-Public Use
  Company Number: JHP201100342

PATIENT
  Age: 41 Year
  Sex: Female

DRUGS (11)
  1. MIDAZOLAM HYDROCHLORIDE [Concomitant]
  2. BICARBONATE (SODIUM BICARBONATE) [Concomitant]
  3. NEOSTIGMINE (NEOSTIGMINE) [Concomitant]
  4. DANTROLENE SODIUM [Suspect]
     Indication: HYPERTHERMIA MALIGNANT
     Dosage: 1100 MG, TOTAL, INTRAVENOUS
     Route: 042
  5. GLYCOPYRROLATE [Concomitant]
  6. MANNITOL [Concomitant]
  7. SEVOFLURANE [Concomitant]
  8. ROCURONIUM BROMIDE [Concomitant]
  9. PROPOFOL [Concomitant]
  10. FENTANYL [Concomitant]
  11. NITROUS OXIDE W/ OXYGEN [Concomitant]

REACTIONS (6)
  - RESPIRATORY FAILURE [None]
  - SALIVARY HYPERSECRETION [None]
  - CARDIAC DISORDER [None]
  - DISSEMINATED INTRAVASCULAR COAGULATION [None]
  - MUSCULAR WEAKNESS [None]
  - PULMONARY OEDEMA [None]
